FAERS Safety Report 9153186 (Version 3)
Quarter: 2013Q2

REPORT INFORMATION
  Report Type: Spontaneous
  Country: US (occurrence: US)
  Receive Date: 20130311
  Receipt Date: 20130410
  Transmission Date: 20140414
  Serious: Yes (Other)
  Sender: FDA-Public Use
  Company Number: US-BIOGENIDEC-2013BI021497

PATIENT
  Age: 53 Year
  Sex: Female

DRUGS (9)
  1. TYSABRI [Suspect]
     Indication: MULTIPLE SCLEROSIS
     Route: 042
     Dates: start: 20070322, end: 20130311
  2. LOSARTAN [Concomitant]
     Indication: HYPERTENSION
  3. METFORMIN [Concomitant]
     Indication: DIABETES MELLITUS
  4. SIMVASTATIN [Concomitant]
     Indication: HYPERCHOLESTEROLAEMIA
  5. CELEXA [Concomitant]
  6. LEXAPRO [Concomitant]
  7. REMERON [Concomitant]
  8. VITAMIN D [Concomitant]
  9. FISH OIL [Concomitant]

REACTIONS (1)
  - Invasive ductal breast carcinoma [Not Recovered/Not Resolved]
